FAERS Safety Report 9190234 (Version 3)
Quarter: 2013Q2

REPORT INFORMATION
  Report Type: Report from Study
  Country: DE (occurrence: DE)
  Receive Date: 20130326
  Receipt Date: 20130617
  Transmission Date: 20140414
  Serious: Yes (Hospitalization)
  Sender: FDA-Public Use
  Company Number: DE-NOVOPROD-373690

PATIENT
  Age: 69 Year
  Sex: Female
  Weight: 87 kg

DRUGS (3)
  1. LIRAGLUTIDE FLEXPEN [Suspect]
     Indication: TYPE 2 DIABETES MELLITUS
     Dosage: 1.2 MG, QD
     Route: 058
     Dates: start: 20120312, end: 20130318
  2. MONO-EMBOLEX [Concomitant]
     Indication: PROPHYLAXIS
     Dosage: 3000 IU, QD
     Dates: start: 20130318
  3. VOMEX A [Concomitant]
     Indication: BRONCHIAL CARCINOMA
     Dosage: 150 MG, QD
     Dates: start: 20130318

REACTIONS (1)
  - Bronchial carcinoma [Not Recovered/Not Resolved]
